FAERS Safety Report 24843135 (Version 1)
Quarter: 2025Q1

REPORT INFORMATION
  Report Type: Report from Study
  Country: US (occurrence: US)
  Receive Date: 20250115
  Receipt Date: 20250115
  Transmission Date: 20250408
  Serious: Yes (Hospitalization)
  Sender: ROCHE
  Company Number: US-ROCHE-10000177009

PATIENT
  Age: 62 Year
  Sex: Female

DRUGS (1)
  1. OCREVUS [Suspect]
     Active Substance: OCRELIZUMAB
     Indication: Multiple sclerosis
     Dosage: 300 MG SINGLE-USE VIAL?INFUSE 600MG IV EVERY 6 MONTHS OVER AT LEAST 3.5 HRS
     Route: 042
     Dates: start: 20181101

REACTIONS (1)
  - COVID-19 [Recovered/Resolved]
